FAERS Safety Report 5267828-X (Version None)
Quarter: 2007Q1

REPORT INFORMATION
  Report Type: 
  Country: None (occurrence: None)
  Receive Date: 20070316
  Receipt Date: 20070306
  Transmission Date: 20070707
  Serious: Yes (Other)
  Sender: FDA-Public Use
  Company Number: CA-PFIZER INC-2007018713

PATIENT
  Sex: Male

DRUGS (3)
  1. VIAGRA [Suspect]
     Route: 048
  2. OMEGA-3 [Concomitant]
  3. GLUCOSAMINE [Concomitant]

REACTIONS (1)
  - VISUAL ACUITY REDUCED [None]
